FAERS Safety Report 10188198 (Version 1)
Quarter: 2014Q2

REPORT INFORMATION
  Report Type: Spontaneous
  Country: US (occurrence: None)
  Receive Date: 20140521
  Receipt Date: 20140521
  Transmission Date: 20141212
  Serious: No
  Sender: FDA-Public Use
  Company Number: None

PATIENT
  Age: 54 Year
  Sex: Female

DRUGS (1)
  1. ILARIS 180MG [Suspect]
     Indication: CONGENITAL ANOMALY
     Dosage: 150MG, Q 8 WEEKS, SUBCUTANEOUS
     Route: 058
     Dates: start: 20140324, end: 20140324

REACTIONS (1)
  - No therapeutic response [None]
